FAERS Safety Report 8523658-4 (Version None)
Quarter: 2012Q2

REPORT INFORMATION
  Report Type: 
  Country: None (occurrence: None)
  Receive Date: 20120406
  Receipt Date: 20100507
  Transmission Date: 20120825
  Serious: Yes (Hospitalization)
  Sender: FDA-Public Use
  Company Number: PHHY2010US29766

PATIENT
  Age: 66 Year
  Sex: Female

DRUGS (8)
  1. IMDUR [Concomitant]
  2. COREG [Concomitant]
  3. TASIGNA [Suspect]
     Indication: CHRONIC MYELOID LEUKAEMIA
     Dosage: 400 MG, BID,
     Dates: start: 20100428, end: 20100505
  4. AVANDIA [Concomitant]
  5. PLAVIX [Concomitant]
  6. ASPIRIN [Concomitant]
  7. ZESTRIL [Concomitant]
  8. GLUCOTROL XL [Concomitant]

REACTIONS (2)
  - LIPASE INCREASED [None]
  - PANCREATITIS [None]
